FAERS Safety Report 5122109-X (Version None)
Quarter: 2006Q4

REPORT INFORMATION
  Report Type: 
  Country: None (occurrence: None)
  Receive Date: 20061004
  Receipt Date: 20061004
  Transmission Date: 20070319
  Serious: Yes (Hospitalization)
  Sender: FDA-Public Use
  Company Number: None

PATIENT
  Age: 77 Year
  Sex: Male
  Weight: 78 kg

DRUGS (2)
  1. BACTRIM DS [Suspect]
     Indication: CELLULITIS
     Dosage: 1 TAB BID PO
     Route: 048
  2. DOXYCYCLINE [Suspect]
     Indication: CELLULITIS
     Dosage: 100 MG Q12H PO
     Route: 048

REACTIONS (7)
  - DRUG ERUPTION [None]
  - DRUG HYPERSENSITIVITY [None]
  - EXCORIATION [None]
  - PAIN [None]
  - PRURITUS [None]
  - RASH ERYTHEMATOUS [None]
  - RASH PAPULAR [None]
